FAERS Safety Report 24453747 (Version 1)
Quarter: 2024Q4

REPORT INFORMATION
  Report Type: Spontaneous
  Country: US (occurrence: US)
  Receive Date: 20241017
  Receipt Date: 20241017
  Transmission Date: 20250115
  Serious: No
  Sender: SAMSUNG BIOEPIS
  Company Number: US-SAMSUNG BIOEPIS-SB-2024-25227

PATIENT
  Age: 60 Year
  Sex: Female
  Weight: 65.86 kg

DRUGS (1)
  1. RENFLEXIS [Suspect]
     Active Substance: INFLIXIMAB-ABDA
     Indication: Enteritis
     Route: 042
     Dates: start: 20240730

REACTIONS (2)
  - Weight decreased [Unknown]
  - Off label use [Unknown]
